FAERS Safety Report 6523009-0 (Version None)
Quarter: 2009Q4

REPORT INFORMATION
  Report Type: 
  Country: None (occurrence: None)
  Receive Date: 20091222
  Receipt Date: 20091209
  Transmission Date: 20100525
  Serious: Yes (Hospitalization, Other)
  Sender: FDA-Public Use
  Company Number: 002737

PATIENT
  Sex: Female
  Weight: 42.2 kg

DRUGS (15)
  1. CIMZIA [Suspect]
     Indication: CROHN'S DISEASE
     Dosage: (SUBCUTANEOUS)
     Route: 058
     Dates: start: 20081106
  2. ZOLOFT /01011402/ [Concomitant]
  3. INEXIUM /01479302/ [Concomitant]
  4. MULTIVITAMIN /01229101/ [Concomitant]
  5. LOMOTIL /00034001/ [Concomitant]
  6. LEVSIN [Concomitant]
  7. FERROUS SULFATE TAB [Concomitant]
  8. CARDIZEM [Concomitant]
  9. ATIVAN [Concomitant]
  10. VITAMIN B-12 [Concomitant]
  11. MACROBID /00024401/ [Concomitant]
  12. ENTOCORT EC [Concomitant]
  13. PENTASA [Concomitant]
  14. AZASAN [Concomitant]
  15. KEFLEX /00145501/ [Concomitant]

REACTIONS (10)
  - ABDOMINAL PAIN [None]
  - CONFUSIONAL STATE [None]
  - DIARRHOEA [None]
  - DRUG HYPERSENSITIVITY [None]
  - INCISION SITE INFECTION [None]
  - INTESTINAL STENOSIS [None]
  - STAPHYLOCOCCAL INFECTION [None]
  - URINARY TRACT INFECTION [None]
  - VOMITING [None]
  - WEIGHT DECREASED [None]
